FAERS Safety Report 14679444 (Version 3)
Quarter: 2021Q1

REPORT INFORMATION
  Report Type: Spontaneous
  Country: CD (occurrence: CD)
  Receive Date: 20180326
  Receipt Date: 20210210
  Transmission Date: 20210419
  Serious: Yes (Death, Life-Threatening, Other)
  Sender: FDA-Public Use
  Company Number: PHHY2018CD052716

PATIENT
  Age: 31 Year
  Sex: Female
  Weight: 71 kg

DRUGS (1)
  1. GLIVEC [Suspect]
     Active Substance: IMATINIB MESYLATE
     Indication: CHRONIC MYELOID LEUKAEMIA
     Dosage: 600 MG, UNK
     Route: 048
     Dates: end: 20170504

REACTIONS (5)
  - Cytogenetic analysis abnormal [Unknown]
  - Drug resistance [Fatal]
  - Anaemia [Fatal]
  - Splenomegaly [Unknown]
  - Thrombocytopenia [Unknown]

NARRATIVE: CASE EVENT DATE: 20170314
